FAERS Safety Report 7454347-5 (Version None)
Quarter: 2011Q2

REPORT INFORMATION
  Report Type: 
  Country: None (occurrence: None)
  Receive Date: 20110503
  Receipt Date: 20110419
  Transmission Date: 20111010
  Serious: Yes (Hospitalization)
  Sender: FDA-Public Use
  Company Number: PL-RANBAXY-2011RR-44015

PATIENT
  Age: 6 Year
  Sex: Female

DRUGS (2)
  1. PYRANTEL [Suspect]
     Indication: HELMINTHIC INFECTION
     Dosage: 250 MG, SINGLE
     Route: 048
     Dates: start: 20110417, end: 20110417
  2. KLABAX 250MG/5ML GRANULES FOR ORAL SUSP. [Suspect]
     Indication: RESPIRATORY TRACT INFECTION
     Dosage: UNK
     Route: 048
     Dates: start: 20110417, end: 20110417

REACTIONS (2)
  - LOGORRHOEA [None]
  - AGITATION [None]
